FAERS Safety Report 6340299-8 (Version None)
Quarter: 2009Q3

REPORT INFORMATION
  Report Type: 
  Country: None (occurrence: None)
  Receive Date: 20090902
  Receipt Date: 20090820
  Transmission Date: 20100115
  Serious: Yes (Hospitalization)
  Sender: FDA-Public Use
  Company Number: 2009AP003401

PATIENT
  Age: 87 Year
  Sex: Male

DRUGS (12)
  1. ALENDRONATE SODIUM [Suspect]
     Indication: OSTEOPOROSIS
     Dosage: 70 MG; UNKNOWN; PO; QW
     Route: 048
     Dates: start: 20080718
  2. ASPIRIN [Suspect]
     Indication: CEREBROVASCULAR ACCIDENT
     Dosage: 75 MG; UNKNOWN; PO; QD
     Route: 048
     Dates: start: 20080718, end: 20090720
  3. ALLOPURINOL [Concomitant]
  4. AMISULPRIDE (AMISULPRIDE) [Concomitant]
  5. CALCIUM CARBONATE [Concomitant]
  6. COLECALCIFEROL (COLECALCIFEROL) [Concomitant]
  7. DOCUSATE SODIUM (DOCUSATE SODIUM) [Concomitant]
  8. FUROSEMIDE [Concomitant]
  9. MIRTAZAPINE [Concomitant]
  10. MACROGOL(MACROGOL) [Concomitant]
  11. PARACETAMOL (PARACETAMOL) [Concomitant]
  12. SENNA (SENNA) [Concomitant]

REACTIONS (1)
  - GASTROINTESTINAL HAEMORRHAGE [None]
